FAERS Safety Report 8376517-4 (Version None)
Quarter: 2012Q2

REPORT INFORMATION
  Report Type: 
  Country: None (occurrence: None)
  Receive Date: 20120522
  Receipt Date: 20120508
  Transmission Date: 20120825
  Serious: Yes (Hospitalization)
  Sender: FDA-Public Use
  Company Number: US-ENDO PHARMACEUTICALS INC.-OPCR20120760

PATIENT
  Sex: Male
  Weight: 75.818 kg

DRUGS (3)
  1. OPANA ER [Suspect]
     Indication: PAIN
     Route: 048
     Dates: start: 20120329, end: 20120424
  2. OPANA ER [Concomitant]
     Indication: PAIN
     Route: 048
     Dates: start: 20110501, end: 20120301
  3. VENLAFAXINE HCL [Suspect]
     Indication: PRODUCT USED FOR UNKNOWN INDICATION
     Dosage: UNK
     Route: 048
     Dates: end: 20120425

REACTIONS (2)
  - DRUG INEFFECTIVE [None]
  - PANCREATITIS [None]
